FAERS Safety Report 8265440-1 (Version None)
Quarter: 2012Q2

REPORT INFORMATION
  Report Type: 
  Country: None (occurrence: None)
  Receive Date: 20120406
  Receipt Date: 20120402
  Transmission Date: 20120825
  Serious: Yes (Other)
  Sender: FDA-Public Use
  Company Number: US-PFIZER INC-2012037186

PATIENT
  Sex: Female
  Weight: 102 kg

DRUGS (12)
  1. FISH OIL [Concomitant]
     Dosage: 2 DF, DAILY
  2. DONNATAL [Concomitant]
     Dosage: 16.2/0.137 EVERY 6 HOURS PRN
  3. RESVERATROL [Concomitant]
     Dosage: 100 MG, 1X/DAY
  4. ALPHA LIPOIC ACID [Concomitant]
     Dosage: 600 MG, 2X/DAY
  5. NORVASC [Suspect]
     Indication: CARDIAC DISORDER
  6. PHENOBARBITAL [Concomitant]
     Indication: CONVULSION
     Dosage: UNK
  7. ACETYLCARNITINE [Concomitant]
     Dosage: 500 MG, 1X/DAY
  8. BYSTOLIC [Suspect]
     Indication: HYPERTENSION
     Dosage: 5 MG, 1X/DAY
     Route: 048
     Dates: start: 20110525, end: 20110528
  9. COCONUT OIL [Concomitant]
     Dosage: 1 DF, 1X/DAY
  10. NORVASC [Suspect]
     Indication: HYPERTENSION
     Dosage: 5 MG, 1X/DAY
     Route: 048
  11. TOPAMAX [Concomitant]
     Indication: CONVULSION
     Dosage: 50 MG, 2X/DAY
     Route: 048
  12. DIGOXIN [Concomitant]
     Indication: HEART RATE IRREGULAR
     Dosage: 0.125 MG, 1X/DAY
     Route: 048

REACTIONS (12)
  - PULMONARY OEDEMA [None]
  - DYSPNOEA [None]
  - INCREASED UPPER AIRWAY SECRETION [None]
  - OEDEMA [None]
  - PALPITATIONS [None]
  - HYPERTENSION [None]
  - SINUS TACHYCARDIA [None]
  - ABDOMINAL DISTENSION [None]
  - RENAL FAILURE [None]
  - COUGH [None]
  - OEDEMA PERIPHERAL [None]
  - ABDOMINAL DISCOMFORT [None]
